FAERS Safety Report 4282386-4 (Version None)
Quarter: 2004Q1

REPORT INFORMATION
  Report Type: 
  Country: None (occurrence: None)
  Receive Date: 20040120
  Receipt Date: 20031015
  Transmission Date: 20041129
  Serious: Yes (Hospitalization)
  Sender: FDA-Public Use
  Company Number: US-JNJFOC-20031003837

PATIENT
  Age: 39 Year
  Sex: Female
  Weight: 70.3075 kg

DRUGS (2)
  1. SYNTHROID [Concomitant]
  2. COPPER T MODEL TCU 380A [Suspect]
     Indication: CONTRACEPTION
     Dosage: 1 DOSE
     Route: 015
     Dates: start: 20010605, end: 20031015

REACTIONS (3)
  - CERVICAL POLYP [None]
  - IUCD COMPLICATION [None]
  - PELVIC PAIN [None]
